FAERS Safety Report 6289926-4 (Version None)
Quarter: 2009Q3

REPORT INFORMATION
  Report Type: 
  Country: None (occurrence: None)
  Receive Date: 20090730
  Receipt Date: 20080922
  Transmission Date: 20100115
  Serious: No
  Sender: FDA-Public Use
  Company Number: US-BRISTOL-MYERS SQUIBB COMPANY-14343297

PATIENT
  Age: 72 Year
  Sex: Female

DRUGS (8)
  1. COUMADIN [Suspect]
     Dates: start: 20080501
  2. WARFARIN SODIUM [Suspect]
     Indication: ATRIAL FIBRILLATION
     Dates: start: 20070901
  3. SEREVENT [Concomitant]
  4. PULMICORT-100 [Concomitant]
  5. ALBUTEROL [Concomitant]
  6. FLECAINIDE ACETATE [Concomitant]
  7. DETICINE [Concomitant]
  8. CLOTAM [Concomitant]

REACTIONS (4)
  - ALOPECIA [None]
  - IMMUNODEFICIENCY [None]
  - INSOMNIA [None]
  - SKIN WRINKLING [None]
